FAERS Safety Report 5796520-8 (Version None)
Quarter: 2008Q3

REPORT INFORMATION
  Report Type: 
  Country: None (occurrence: None)
  Receive Date: 20080701
  Receipt Date: 20080627
  Transmission Date: 20090109
  Serious: Yes (Hospitalization)
  Sender: FDA-Public Use
  Company Number: B0527248A

PATIENT
  Age: 58 Year
  Sex: Male

DRUGS (7)
  1. LEUKERAN [Suspect]
     Route: 048
     Dates: start: 20080423
  2. PLAVIX [Suspect]
     Dosage: 75MG PER DAY
     Route: 048
     Dates: start: 20080410, end: 20080510
  3. PANTOPRAZOLE SODIUM [Concomitant]
     Dosage: 40MG PER DAY
     Route: 048
     Dates: start: 20031001
  4. ASCAL [Concomitant]
     Dosage: 100MG PER DAY
     Route: 048
     Dates: start: 20070601
  5. CRESTOR [Concomitant]
     Dosage: 5MG PER DAY
     Route: 048
     Dates: start: 20080201
  6. METOPROLOL SUCCINATE [Concomitant]
     Dosage: 50MG PER DAY
     Route: 048
     Dates: start: 20041001
  7. PROMOCARD [Concomitant]
     Dosage: 90MG PER DAY
     Route: 048
     Dates: start: 20080201

REACTIONS (2)
  - DRUG INTERACTION [None]
  - DYSPNOEA [None]
